FAERS Safety Report 9262708 (Version 1)
Quarter: 2013Q2

REPORT INFORMATION
  Report Type: Spontaneous
  Country: US (occurrence: None)
  Receive Date: 20130426
  Receipt Date: 20130426
  Transmission Date: 20140414
  Serious: Yes (Hospitalization)
  Sender: FDA-Public Use
  Company Number: 001516863A

PATIENT
  Age: 38 Year
  Sex: Female

DRUGS (2)
  1. MEANINGFUL BEAUTY DAY CREAM SPF 20 [Suspect]
     Dosage: DERMAL
     Dates: start: 20130405
  2. MEANINGFUL BEAUTY CINDY CRAWFORD SKIN BRIGHTENING DECOLLETE AND NECK TREATMENT SPF 15 [Suspect]
     Dosage: DERMAL
     Dates: start: 20130405

REACTIONS (2)
  - Dyspnoea [None]
  - Swelling face [None]
